FAERS Safety Report 17163077 (Version 1)
Quarter: 2019Q4

REPORT INFORMATION
  Report Type: Spontaneous
  Country: US (occurrence: US)
  Receive Date: 20191216
  Receipt Date: 20191216
  Transmission Date: 20200122
  Serious: Yes (Hospitalization)
  Sender: FDA-Public Use
  Company Number: None

PATIENT
  Age: 68 Year
  Sex: Female
  Weight: 86.7 kg

DRUGS (8)
  1. APIXABAN [Suspect]
     Active Substance: APIXABAN
     Indication: ATRIAL FIBRILLATION
     Route: 048
     Dates: start: 20141122
  2. ASPIRIN. [Suspect]
     Active Substance: ASPIRIN
     Route: 048
     Dates: start: 20130411
  3. AMIODARONE 200MG DAILY [Concomitant]
  4. CARVEDILOL 12.5MG BID [Concomitant]
  5. FUROSEMIDE 20MG DIALY [Concomitant]
  6. VAGIFEM 10MCG TWICE WEEKLY [Concomitant]
  7. MULTIVITAMIN DAILY [Concomitant]
  8. ATORVASTATIN 40MG DAILY [Concomitant]

REACTIONS (3)
  - Abdominal pain [None]
  - Rectal haemorrhage [None]
  - Colitis [None]

NARRATIVE: CASE EVENT DATE: 20160826
